FAERS Safety Report 8945166 (Version 2)
Quarter: 2013Q1

REPORT INFORMATION
  Report Type: Spontaneous
  Country: US (occurrence: US)
  Receive Date: 20121204
  Receipt Date: 20130102
  Transmission Date: 20140127
  Serious: Yes (Hospitalization)
  Sender: FDA-Public Use
  Company Number: US-AMGEN-USASP2012066646

PATIENT
  Age: 63 Year
  Sex: Female

DRUGS (1)
  1. ENBREL [Suspect]
     Indication: PSORIASIS
     Dosage: 50 MG, 2 TIMES/WK
     Dates: start: 20060101, end: 200912

REACTIONS (4)
  - Staphylococcal infection [Recovered/Resolved]
  - Pain in extremity [Recovered/Resolved]
  - Excoriation [Recovered/Resolved]
  - Psoriasis [Recovered/Resolved]
